FAERS Safety Report 8811866 (Version 1)
Quarter: 2012Q4

REPORT INFORMATION
  Report Type: 
  Country: US (occurrence: US)
  Receive Date: 20120927
  Receipt Date: 20120927
  Transmission Date: 20130627
  Serious: No
  Sender: FDA-Public Use
  Company Number: US-MUTUAL PHARMACEUTICAL COMPANY, INC.-SFTM20120014

PATIENT
  Age: 19 Year
  Sex: Female
  Weight: 42.68 kg

DRUGS (1)
  1. SULFAMETHOXAZOLE AND TRIMETHOPRIM DS [Suspect]
     Indication: SINUSITIS
     Route: 065
     Dates: start: 20120306, end: 20120311

REACTIONS (5)
  - Panic attack [Not Recovered/Not Resolved]
  - Depression [Unknown]
  - Vomiting [Recovered/Resolved]
  - Abdominal pain [Recovered/Resolved]
  - Diarrhoea [Recovered/Resolved]
